FAERS Safety Report 24591949 (Version 1)
Quarter: 2024Q4

REPORT INFORMATION
  Report Type: Spontaneous
  Country: US (occurrence: US)
  Receive Date: 20241108
  Receipt Date: 20241108
  Transmission Date: 20250115
  Serious: Yes (Other)
  Sender: ALEXION PHARMACEUTICALS
  Company Number: US-AstraZeneca-CH-00724913A

PATIENT
  Age: 58 Year

DRUGS (4)
  1. FASENRA [Suspect]
     Active Substance: BENRALIZUMAB
  2. FASENRA [Suspect]
     Active Substance: BENRALIZUMAB
  3. FASENRA [Suspect]
     Active Substance: BENRALIZUMAB
  4. FASENRA [Suspect]
     Active Substance: BENRALIZUMAB

REACTIONS (6)
  - COVID-19 [Unknown]
  - Eosinophil count increased [Unknown]
  - Dyspnoea [Unknown]
  - Pulmonary function test decreased [Unknown]
  - Pulmonary function test decreased [Unknown]
  - Pulmonary function test decreased [Unknown]
